FAERS Safety Report 5057760-9 (Version None)
Quarter: 2006Q3

REPORT INFORMATION
  Report Type: 
  Country: None (occurrence: None)
  Receive Date: 20060721
  Receipt Date: 20060207
  Transmission Date: 20061208
  Serious: No
  Sender: FDA-Public Use
  Company Number: US-GLAXOSMITHKLINE-A0592661A

PATIENT

DRUGS (2)
  1. AVANDIA [Suspect]
     Route: 048
     Dates: start: 20050101, end: 20050101
  2. METFORMIN [Suspect]
     Route: 048

REACTIONS (2)
  - DIARRHOEA [None]
  - STOMACH DISCOMFORT [None]
